FAERS Safety Report 5306833-1 (Version None)
Quarter: 2007Q2

REPORT INFORMATION
  Report Type: 
  Country: None (occurrence: None)
  Receive Date: 20070420
  Receipt Date: 20070420
  Transmission Date: 20071010
  Serious: Yes (Other)
  Sender: FDA-Public Use
  Company Number: None

PATIENT
  Sex: Male
  Weight: 71.2147 kg

DRUGS (9)
  1. HYDROXYCHLOROQUINE SULFATE [Suspect]
     Indication: ARTHRITIS
     Dosage: 200 MG 2 Q D
     Dates: start: 19920101
  2. ARAVA [Concomitant]
  3. AZULFIDINE [Concomitant]
  4. LIPITOR [Concomitant]
  5. FOLIC ACID [Concomitant]
  6. ACIPHEX [Concomitant]
  7. PREMARIN [Concomitant]
  8. FISH OIL [Concomitant]
  9. METAMUCIL [Concomitant]

REACTIONS (2)
  - TREATMENT NONCOMPLIANCE [None]
  - VISUAL FIELD DEFECT [None]
